FAERS Safety Report 7215535-6 (Version None)
Quarter: 2011Q1

REPORT INFORMATION
  Report Type: 
  Country: None (occurrence: None)
  Receive Date: 20110104
  Receipt Date: 20110104
  Transmission Date: 20110831
  Serious: No
  Sender: FDA-Public Use
  Company Number: None

PATIENT
  Sex: Male
  Weight: 71 kg

DRUGS (9)
  1. VINCRISTINE SULFATE [Suspect]
     Dosage: 2 MG
  2. PREDNISONE [Suspect]
     Dosage: 100 MG
  3. IFOSFAMIDE [Suspect]
     Dosage: 9250 MG
  4. ETOPOSIDE [Suspect]
     Dosage: 185 MG
  5. CARBOPLATIN [Suspect]
     Dosage: 504 MG
  6. RITUXIMAB (MOAB C2B8 ANTI CD20 CHIMERIC) [Suspect]
     Dosage: 694 MG
  7. CYCLOPHOSPHAMIDE [Suspect]
     Dosage: 1388 MG
  8. DOXORUBICIN HYDROCHLORIDE [Suspect]
     Dosage: 93 MG
  9. MESNA [Suspect]
     Dosage: 9250 MG

REACTIONS (1)
  - MALIGNANT MELANOMA OF SITES OTHER THAN SKIN [None]
